FAERS Safety Report 24981179 (Version 1)
Quarter: 2025Q1

REPORT INFORMATION
  Report Type: Spontaneous
  Country: US (occurrence: US)
  Receive Date: 20250218
  Receipt Date: 20250218
  Transmission Date: 20250408
  Serious: No
  Sender: MERZ
  Company Number: US-MERZ PHARMACEUTICALS, LLC-ACO_177602_2024

PATIENT
  Age: 77 Year
  Sex: Female

DRUGS (5)
  1. INBRIJA [Suspect]
     Active Substance: LEVODOPA
     Indication: Parkinson^s disease
     Dates: start: 20240710
  2. INBRIJA [Suspect]
     Active Substance: LEVODOPA
     Indication: On and off phenomenon
     Dates: start: 20240710
  3. RYTARY [Concomitant]
     Active Substance: CARBIDOPA\LEVODOPA
     Indication: Product used for unknown indication
     Dosage: 23.75-95 MILLIGRAM, QID (5AM-2 PILLS, 9AM-2 PILLS, 1PM-2 PILLS, 5PM-3 PILLS).
     Route: 065
  4. MIRTAZAPINE [Concomitant]
     Active Substance: MIRTAZAPINE
     Indication: Product used for unknown indication
     Dosage: 7.5 MILLIGRAM, 2 DOSAGE FORM, HS
     Route: 065
  5. MELATONIN [Concomitant]
     Active Substance: MELATONIN
     Indication: Product used for unknown indication
     Dosage: 10 MILLIGRAM, HS
     Route: 065

REACTIONS (14)
  - Therapeutic product effect prolonged [Not Recovered/Not Resolved]
  - Withdrawal syndrome [Recovered/Resolved]
  - Walking disability [Recovered/Resolved]
  - Sleep disorder [Not Recovered/Not Resolved]
  - Unevaluable event [Recovered/Resolved]
  - On and off phenomenon [Recovered/Resolved]
  - Condition aggravated [Recovered/Resolved]
  - Ill-defined disorder [Recovered/Resolved]
  - Bradykinesia [Recovered/Resolved]
  - Incontinence [Not Recovered/Not Resolved]
  - Agitation [Recovered/Resolved]
  - Abnormal behaviour [Recovered/Resolved]
  - Drug ineffective [Recovered/Resolved]
  - Incorrect dose administered [Recovered/Resolved]

NARRATIVE: CASE EVENT DATE: 20240717
